FAERS Safety Report 4837017-9 (Version None)
Quarter: 2005Q4

REPORT INFORMATION
  Report Type: 
  Country: None (occurrence: None)
  Receive Date: 20051121
  Receipt Date: 20051114
  Transmission Date: 20060501
  Serious: Yes (Other)
  Sender: FDA-Public Use
  Company Number: GBWYE138114NOV05

PATIENT
  Age: 3 Month

DRUGS (1)
  1. EFFEXOR [Suspect]
     Indication: DEPRESSION
     Route: 064

REACTIONS (4)
  - CONGENITAL ANOMALY [None]
  - DRUG EXPOSURE DURING PREGNANCY [None]
  - GROWTH RETARDATION [None]
  - HAEMANGIOMA [None]
